FAERS Safety Report 13219444 (Version 1)
Quarter: 2017Q1

REPORT INFORMATION
  Report Type: Spontaneous
  Country: US (occurrence: US)
  Receive Date: 20170210
  Receipt Date: 20170210
  Transmission Date: 20170428
  Serious: No
  Sender: FDA-Public Use
  Company Number: US-ASTRAZENECA-2017SE12481

PATIENT
  Sex: Male
  Weight: 81.6 kg

DRUGS (5)
  1. DALIRESP [Suspect]
     Active Substance: ROFLUMILAST
     Indication: CHRONIC OBSTRUCTIVE PULMONARY DISEASE
     Dosage: DAILY
     Route: 048
     Dates: start: 201608, end: 20170130
  2. PLAVIX [Concomitant]
     Active Substance: CLOPIDOGREL BISULFATE
     Indication: STENT PLACEMENT
  3. THEOPHYLLINE [Concomitant]
     Active Substance: THEOPHYLLINE ANHYDROUS
     Indication: CHRONIC OBSTRUCTIVE PULMONARY DISEASE
  4. SPIRIVA RESPIMAT [Concomitant]
     Active Substance: TIOTROPIUM BROMIDE
     Indication: CHRONIC OBSTRUCTIVE PULMONARY DISEASE
  5. SYMBICORT [Concomitant]
     Active Substance: BUDESONIDE\FORMOTEROL FUMARATE DIHYDRATE
     Indication: CHRONIC OBSTRUCTIVE PULMONARY DISEASE

REACTIONS (3)
  - Lethargy [Unknown]
  - Nausea [Unknown]
  - Influenza like illness [Unknown]
